FAERS Safety Report 4363110-3 (Version None)
Quarter: 2004Q2

REPORT INFORMATION
  Report Type: 
  Country: None (occurrence: None)
  Receive Date: 20040519
  Receipt Date: 20040506
  Transmission Date: 20050107
  Serious: Yes (Hospitalization)
  Sender: FDA-Public Use
  Company Number: 2004031170

PATIENT
  Age: 59 Year
  Sex: Male
  Weight: 92 kg

DRUGS (6)
  1. NEURONTIN [Suspect]
     Indication: NEUROPATHIC PAIN
     Dosage: 900 MG (300 MG , 3 IN 1 D), ORAL
     Route: 048
     Dates: start: 20030520, end: 20030526
  2. CARBAMAZEPINE [Suspect]
     Indication: NEUROPATHIC PAIN
     Dosage: 600 MG (200 MG, 3 IN 1 D), ORAL
     Route: 048
     Dates: end: 20030521
  3. BENDROFLUMETHIAZIDE (BENDROFLUMETHIAZIDE) [Concomitant]
  4. AMITRIPTYLINE HCL [Concomitant]
  5. RAMIPRIL [Concomitant]
  6. TRAMADOL HCL [Concomitant]

REACTIONS (3)
  - HEPATIC FUNCTION ABNORMAL [None]
  - PRURITUS GENERALISED [None]
  - RASH MACULO-PAPULAR [None]
